FAERS Safety Report 25214108 (Version 1)
Quarter: 2025Q2

REPORT INFORMATION
  Report Type: Other
  Country: DE (occurrence: DE)
  Receive Date: 20250418
  Receipt Date: 20250418
  Transmission Date: 20250717
  Serious: Yes (Hospitalization, Other)
  Sender: LYNE LABORATORIES
  Company Number: DE-Lyne Laboratories Inc.-2175149

PATIENT
  Age: 54 Year
  Sex: Male

DRUGS (16)
  1. DEXAMETHASONE [Suspect]
     Active Substance: DEXAMETHASONE
     Indication: Mantle cell lymphoma
  2. RITUXIMAB [Suspect]
     Active Substance: RITUXIMAB
  3. FLUCONAZOLE [Concomitant]
     Active Substance: FLUCONAZOLE
  4. FLUCYTOSINE [Concomitant]
     Active Substance: FLUCYTOSINE
  5. AMPHOTERICIN B [Concomitant]
     Active Substance: AMPHOTERICIN B
  6. SULFAMETHOXAZOLE AND TRIMETHOPRIM [Concomitant]
     Active Substance: SULFAMETHOXAZOLE\TRIMETHOPRIM
  7. ACYCLOVIR [Concomitant]
     Active Substance: ACYCLOVIR
  8. AMPICILLIN SODIUM [Concomitant]
     Active Substance: AMPICILLIN SODIUM
  9. MEROPENEM [Concomitant]
     Active Substance: MEROPENEM
  10. VANCOMYCIN HYDROCHLORIDE [Concomitant]
     Active Substance: VANCOMYCIN HYDROCHLORIDE
  11. CISPLATIN [Suspect]
     Active Substance: CISPLATIN
  12. CYTARABINE [Suspect]
     Active Substance: CYTARABINE
  13. PREDNISONE [Suspect]
     Active Substance: PREDNISONE
  14. VINCRISTINE SULFATE [Suspect]
     Active Substance: VINCRISTINE SULFATE
  15. DOXORUBICIN HYDROCHLORIDE [Suspect]
     Active Substance: DOXORUBICIN HYDROCHLORIDE
  16. CYCLOPHOSPHAMIDE [Suspect]
     Active Substance: CYCLOPHOSPHAMIDE

REACTIONS (1)
  - Neutropenia [Unknown]
